FAERS Safety Report 23309190 (Version 1)
Quarter: 2023Q4

REPORT INFORMATION
  Report Type: Spontaneous
  Country: US (occurrence: None)
  Receive Date: 20231215
  Receipt Date: 20231215
  Transmission Date: 20240110
  Serious: Yes (Hospitalization, Disabling)
  Sender: FDA-Public Use
  Company Number: None

PATIENT
  Age: 7 Month
  Sex: Male
  Weight: 5.54 kg

DRUGS (5)
  1. CLOPIDOGREL [Suspect]
     Active Substance: CLOPIDOGREL BISULFATE
  2. ASPIRIN [Suspect]
     Active Substance: ASPIRIN
  3. FUROSEMIDE [Suspect]
     Active Substance: FUROSEMIDE
  4. DEXTROSE\SODIUM CHLORIDE [Suspect]
     Active Substance: DEXTROSE\SODIUM CHLORIDE
  5. LANSOPRAZOLE [Suspect]
     Active Substance: LANSOPRAZOLE

REACTIONS (6)
  - Cardiac failure [None]
  - Ejection fraction decreased [None]
  - Tachypnoea [None]
  - Vomiting [None]
  - Ventricular septal defect [None]
  - Bronchus compression [None]

NARRATIVE: CASE EVENT DATE: 20231130
